FAERS Safety Report 12528966 (Version 1)
Quarter: 2016Q3

REPORT INFORMATION
  Report Type: Spontaneous
  Country: US (occurrence: US)
  Receive Date: 20160705
  Receipt Date: 20160705
  Transmission Date: 20161109
  Serious: No
  Sender: FDA-Public Use
  Company Number: US-CARDINAL HEALTH 418, INC.-1054695

PATIENT
  Age: 52 Year
  Sex: Female
  Weight: 85.91 kg

DRUGS (1)
  1. SODIUM IODIDE I 123 [Suspect]
     Active Substance: SODIUM IODIDE I-123
     Indication: THYROID DISORDER
     Route: 048
     Dates: start: 20160316, end: 20160316

REACTIONS (3)
  - Hypersensitivity [Recovering/Resolving]
  - Dermatitis allergic [Recovering/Resolving]
  - Headache [Recovered/Resolved]

NARRATIVE: CASE EVENT DATE: 20160316
